FAERS Safety Report 9580682 (Version 2)
Quarter: 2013Q4

REPORT INFORMATION
  Report Type: Spontaneous
  Country: US (occurrence: US)
  Receive Date: 20131002
  Receipt Date: 20131111
  Transmission Date: 20140711
  Serious: No
  Sender: FDA-Public Use
  Company Number: US-TEVA-435580USA

PATIENT
  Age: 34 Year
  Sex: Female
  Weight: 79.45 kg

DRUGS (3)
  1. PARAGARD 380A [Suspect]
     Indication: CONTRACEPTION
     Dates: start: 20130923, end: 20130927
  2. CAMILA [Concomitant]
     Indication: CONTRACEPTION
  3. LEVOTHYROXINE [Concomitant]
     Indication: HYPOTHYROIDISM
     Dosage: 75 MICROGRAM DAILY;
     Route: 048

REACTIONS (1)
  - Device expulsion [Recovered/Resolved]
